FAERS Safety Report 6097335-6 (Version None)
Quarter: 2009Q1

REPORT INFORMATION
  Report Type: 
  Country: None (occurrence: None)
  Receive Date: 20090227
  Receipt Date: 20090220
  Transmission Date: 20090719
  Serious: Yes (Other)
  Sender: FDA-Public Use
  Company Number: US-ABBOTT-09P-163-0558997-00

PATIENT
  Sex: Male
  Weight: 90.8 kg

DRUGS (4)
  1. DEPAKOTE ER [Suspect]
     Indication: BIPOLAR DISORDER
     Route: 048
     Dates: start: 20080101
  2. DEPAKOTE ER [Suspect]
     Dosage: UNKNOWN DOSE
     Route: 048
     Dates: end: 20080101
  3. CYMBALTA [Suspect]
     Indication: BIPOLAR DISORDER
     Route: 048
  4. TOPAMAX [Suspect]
     Indication: BIPOLAR DISORDER
     Route: 048

REACTIONS (2)
  - PARATHYROIDECTOMY [None]
  - TEMPERATURE REGULATION DISORDER [None]
